FAERS Safety Report 10177773 (Version 2)
Quarter: 2014Q2

REPORT INFORMATION
  Report Type: Report from Study
  Country: US (occurrence: US)
  Receive Date: 20140516
  Receipt Date: 20140516
  Transmission Date: 20141212
  Serious: Yes (Hospitalization, Other)
  Sender: FDA-Public Use
  Company Number: US-ABBVIE-14K-163-1213550-00

PATIENT
  Age: 43 Year
  Sex: Female
  Weight: 108.96 kg

DRUGS (38)
  1. HUMIRA [Suspect]
     Indication: ANKYLOSING SPONDYLITIS
     Dates: start: 201404, end: 20140426
  2. DILAUDID [Suspect]
     Indication: PAIN
     Dates: start: 20140427, end: 20140427
  3. UNKNOWN IV MEDICATION [Suspect]
     Indication: PRODUCT USED FOR UNKNOWN INDICATION
     Dates: start: 20140427
  4. E2 [Concomitant]
     Indication: HORMONE REPLACEMENT THERAPY
  5. E2 [Concomitant]
     Indication: HYSTERECTOMY
  6. PRILOSEC [Concomitant]
     Indication: GASTROOESOPHAGEAL REFLUX DISEASE
  7. PRILOSEC [Concomitant]
     Indication: PROPHYLAXIS
  8. PRILOSEC [Concomitant]
     Indication: GASTROOESOPHAGEAL REFLUX DISEASE
  9. CLONAZEPAM [Concomitant]
     Indication: RESTLESS LEGS SYNDROME
     Dosage: AT BEDTIME, ONE TEASPOON
  10. SYMBICORT [Concomitant]
     Indication: ASTHMA
     Dosage: 160/4.5 MG
     Route: 055
  11. METOPROLOL [Concomitant]
     Indication: SYNCOPE
     Dosage: 1/2 TAB
  12. ZANTAC [Concomitant]
     Indication: MECHANICAL URTICARIA
  13. XANAX [Concomitant]
     Indication: ANXIETY
  14. LYRICA [Concomitant]
     Indication: FIBROMYALGIA
  15. POTASSIUM [Concomitant]
     Indication: CARDIAC FAILURE CONGESTIVE
     Dosage: LIQUID ONE TABLESPOON WHEN DEMIDEX IS TAKEN
  16. POTASSIUM [Concomitant]
     Indication: MINERAL SUPPLEMENTATION
  17. DEMADEX [Concomitant]
     Indication: FLUID OVERLOAD
     Dosage: ONE TO TWO TABLETS
  18. DEMADEX [Concomitant]
     Indication: CARDIAC FAILURE CONGESTIVE
  19. COMBIVENT [Concomitant]
     Indication: ASTHMA
     Dosage: 2 PUFFS, FOUR TIMES A DAY
     Route: 055
  20. FLONASE [Concomitant]
     Indication: HYPERSENSITIVITY
     Dosage: TWO SPRAY EACH NOSTRIL
  21. PHENERGAN [Concomitant]
     Indication: NAUSEA
     Dosage: ONE TABLET
  22. BENADRYL [Concomitant]
     Indication: INSOMNIA
     Dosage: 2 TABLET
  23. BENADRYL [Concomitant]
     Indication: INSOMNIA
  24. ESGIC [Concomitant]
     Indication: MIGRAINE
     Dosage: 50/325/40 MG
  25. NORCO [Concomitant]
     Indication: BACK PAIN
     Dosage: 7.5/325 MG, EVERY FOUR HOURS
  26. VITAMIN E [Concomitant]
     Indication: VITAMIN SUPPLEMENTATION
  27. VIT C [Concomitant]
     Indication: VITAMIN SUPPLEMENTATION
  28. FISH OIL [Concomitant]
     Indication: BLOOD CHOLESTEROL INCREASED
  29. MULTI VIT [Concomitant]
     Indication: VITAMIN SUPPLEMENTATION
     Dosage: TWO GUMMIES
  30. TUMS [Concomitant]
     Indication: MINERAL SUPPLEMENTATION
  31. VIACTIV [Concomitant]
     Indication: VITAMIN SUPPLEMENTATION
     Dosage: 500/500 IU
  32. MOTRIN CHILDREN [Concomitant]
     Indication: PAIN
     Dosage: 2 TABLET
  33. MOTRIN CHILDREN [Concomitant]
     Indication: ARTHRALGIA
  34. LIPTOR [Concomitant]
     Indication: BLOOD CHOLESTEROL INCREASED
     Dosage: AT BEDTIME
  35. EC-3MG/P-100 HORMONE CREAM [Concomitant]
     Indication: HYSTERECTOMY
  36. ZONOGRAN [Concomitant]
     Indication: MIGRAINE
  37. DUONEB [Concomitant]
     Indication: ASTHMA
  38. ESGESIC [Concomitant]
     Indication: MIGRAINE

REACTIONS (19)
  - Dizziness [Recovered/Resolved]
  - Vertigo [Unknown]
  - Injection site erythema [Recovered/Resolved]
  - Nausea [Recovered/Resolved]
  - Vomiting [Recovered/Resolved]
  - Vision blurred [Unknown]
  - Injection site nodule [Recovered/Resolved]
  - Orthostatic hypotension [Recovered/Resolved]
  - Fall [Recovered/Resolved]
  - Vomiting [Recovered/Resolved]
  - Intestinal obstruction [Recovered/Resolved]
  - Abdominal adhesions [Recovered/Resolved]
  - Infusion site erythema [Not Recovered/Not Resolved]
  - Infusion site swelling [Not Recovered/Not Resolved]
  - Infusion site pain [Not Recovered/Not Resolved]
  - Wound secretion [Not Recovered/Not Resolved]
  - Respiratory arrest [Recovered/Resolved]
  - Syncope [Recovered/Resolved]
  - Pyrexia [Recovering/Resolving]
